FAERS Safety Report 4300242-X (Version None)
Quarter: 2004Q1

REPORT INFORMATION
  Report Type: 
  Country: None (occurrence: None)
  Receive Date: 20040218
  Receipt Date: 20040203
  Transmission Date: 20041129
  Serious: Yes (Hospitalization)
  Sender: FDA-Public Use
  Company Number: 204531

PATIENT
  Age: 25 Year
  Sex: Female
  Weight: 52.2 kg

DRUGS (4)
  1. XOLAIR [Suspect]
     Indication: ASTHMA
     Dosage: 300 MG Q2W, SUBCUTANEOUS
     Route: 058
     Dates: start: 20031231
  2. ZYRTEC [Concomitant]
  3. PULMICORT [Concomitant]
  4. SINGULAIR (MONTELUKAS SODIUM) [Concomitant]

REACTIONS (1)
  - HYPERSENSITIVITY [None]
